FAERS Safety Report 5662684-X (Version None)
Quarter: 2008Q1

REPORT INFORMATION
  Report Type: 
  Country: None (occurrence: None)
  Receive Date: 20080313
  Receipt Date: 20080225
  Transmission Date: 20080703
  Serious: Yes (Hospitalization)
  Sender: FDA-Public Use
  Company Number: CA-BAYER-200715061NA

PATIENT
  Age: 89 Year
  Sex: Female

DRUGS (14)
  1. AVELOX [Suspect]
     Indication: PNEUMONIA
     Dosage: TOTAL DAILY DOSE: 400 MG  UNIT DOSE: 400 MG
     Route: 048
     Dates: start: 20070528, end: 20070531
  2. ASPIRIN [Concomitant]
  3. CERUMENEX [Concomitant]
  4. DEXTRAN [Concomitant]
  5. ALCOHOL [Concomitant]
  6. DOMPERIDONE [Concomitant]
     Dosage: TOTAL DAILY DOSE: 40 MG
  7. FUROSEMIDE [Concomitant]
  8. LIPITOR [Concomitant]
  9. LOMOTIL [Concomitant]
  10. NITRO-DUR [Concomitant]
  11. NOVORAPID [Concomitant]
  12. PREVACID [Concomitant]
     Route: 048
  13. SYNTHROID [Concomitant]
  14. VASOTEC [Concomitant]
     Dosage: TOTAL DAILY DOSE: 20 MG
     Route: 048

REACTIONS (4)
  - ASTHENIA [None]
  - HALLUCINATION [None]
  - HYPERHIDROSIS [None]
  - HYPOGLYCAEMIA [None]
